FAERS Safety Report 7219776-3 (Version None)
Quarter: 2011Q1

REPORT INFORMATION
  Report Type: 
  Country: None (occurrence: None)
  Receive Date: 20110111
  Receipt Date: 20101231
  Transmission Date: 20110831
  Serious: Yes (Death)
  Sender: FDA-Public Use
  Company Number: US-JNJFOC-20110100938

PATIENT
  Age: 27 Year
  Sex: Male

DRUGS (9)
  1. RISPERIDONE [Suspect]
     Indication: SUICIDE ATTEMPT
     Route: 048
  2. FUROSEMIDE [Suspect]
     Indication: SUICIDE ATTEMPT
     Route: 048
  3. DOXAZOSIN [Suspect]
     Indication: SUICIDE ATTEMPT
     Route: 048
  4. HYDROCHLOROTHIAZIDE [Suspect]
     Indication: SUICIDE ATTEMPT
     Route: 048
  5. IBUPROFEN [Suspect]
     Indication: SUICIDE ATTEMPT
     Route: 048
  6. CARBIDOPA AND LEVODOPA [Suspect]
     Indication: SUICIDE ATTEMPT
     Route: 048
  7. CLONAZEPAM [Suspect]
     Indication: SUICIDE ATTEMPT
     Route: 048
  8. QUETIAPINE [Suspect]
     Indication: SUICIDE ATTEMPT
     Route: 048
  9. AMLODIPINE [Suspect]
     Indication: SUICIDE ATTEMPT
     Route: 048

REACTIONS (1)
  - TOXICITY TO VARIOUS AGENTS [None]
